FAERS Safety Report 9696186 (Version 1)
Quarter: 2013Q4

REPORT INFORMATION
  Report Type: Spontaneous
  Country: FR (occurrence: None)
  Receive Date: 20131115
  Receipt Date: 20131115
  Transmission Date: 20140711
  Serious: Yes (Hospitalization)
  Sender: FDA-Public Use
  Company Number: 2013CP000132

PATIENT
  Age: 49 Year
  Sex: Female

DRUGS (4)
  1. PERFALGAN [Suspect]
     Route: 042
     Dates: start: 20130221, end: 20130319
  2. TRANXENE [Suspect]
     Route: 042
     Dates: start: 20130221, end: 20130319
  3. EUPANTOL [Suspect]
     Route: 042
     Dates: start: 20130221, end: 20130319
  4. ROCEPHINE [Suspect]
     Route: 042
     Dates: start: 20130212, end: 20130319

REACTIONS (3)
  - Agranulocytosis [None]
  - Transaminases increased [None]
  - Blood alkaline phosphatase increased [None]
